FAERS Safety Report 17765162 (Version 1)
Quarter: 2020Q2

REPORT INFORMATION
  Report Type: Spontaneous
  Country: US (occurrence: US)
  Receive Date: 20200511
  Receipt Date: 20200511
  Transmission Date: 20200714
  Serious: No
  Sender: FDA-Public Use
  Company Number: US-JNJFOC-20200510381

PATIENT
  Sex: Male

DRUGS (1)
  1. XARELTO [Suspect]
     Active Substance: RIVAROXABAN
     Indication: PULMONARY THROMBOSIS
     Dosage: 15 MG TWICE DAILY FOR 3 WEEKS, THEN SUPPOSED TO TAKE XARELTO 20 MG ONCE DAILY FOR 4TH WEEK
     Route: 048

REACTIONS (2)
  - Dizziness [Unknown]
  - Product dose omission [Unknown]
